FAERS Safety Report 6931194 (Version 18)
Quarter: 2014Q3

REPORT INFORMATION
  Report Type: Spontaneous
  Country: US (occurrence: US)
  Receive Date: 20090309
  Receipt Date: 20140927
  Transmission Date: 20150326
  Serious: Yes (Death, Other)
  Sender: FDA-Public Use
  Company Number: PHEH2009US02345

PATIENT
  Age: 77 Year
  Sex: Female

DRUGS (20)
  1. OXYCONTIN [Concomitant]
     Active Substance: OXYCODONE HYDROCHLORIDE
  2. PREVACID [Concomitant]
     Active Substance: LANSOPRAZOLE
     Dosage: 30 MG, QD
     Route: 048
  3. LASIX [Concomitant]
     Active Substance: FUROSEMIDE
  4. LIPITOR [Concomitant]
     Active Substance: ATORVASTATIN CALCIUM
  5. CEPHALEXIN. [Concomitant]
     Active Substance: CEPHALEXIN
     Dosage: 500 MG, BID
     Route: 048
  6. COMPAZINE [Concomitant]
     Active Substance: PROCHLORPERAZINE MALEATE
  7. REMERON [Concomitant]
     Active Substance: MIRTAZAPINE
     Dosage: 3 DF, QHS
     Route: 048
  8. INDOCIN [Concomitant]
     Active Substance: INDOMETHACIN\INDOMETHACIN SODIUM
  9. PREDNISONE. [Concomitant]
     Active Substance: PREDNISONE
  10. ATARAX [Concomitant]
     Active Substance: HYDROXYZINE\HYDROXYZINE HYDROCHLORIDE
  11. ZOMETA [Suspect]
     Active Substance: ZOLEDRONIC ACID
     Dosage: 4 MG, UNK
     Route: 041
     Dates: start: 20031107, end: 2006
  12. LOPRESSOR [Concomitant]
     Active Substance: METOPROLOL TARTRATE
  13. NICOTINE. [Concomitant]
     Active Substance: NICOTINE
     Route: 062
  14. DESYREL [Concomitant]
     Active Substance: TRAZODONE HYDROCHLORIDE
     Dosage: 100 MG, QHS
     Route: 048
  15. PERCOCET [Concomitant]
     Active Substance: ACETAMINOPHEN\OXYCODONE HYDROCHLORIDE
  16. AREDIA [Suspect]
     Active Substance: PAMIDRONATE DISODIUM
  17. TRAZODONE [Concomitant]
     Active Substance: TRAZODONE HYDROCHLORIDE
  18. DEMEROL [Concomitant]
     Active Substance: MEPERIDINE HYDROCHLORIDE
  19. WELLBUTRIN [Concomitant]
     Active Substance: BUPROPION HYDROCHLORIDE
  20. AMBIEN [Concomitant]
     Active Substance: ZOLPIDEM TARTRATE
     Dosage: 5 MG, QHS

REACTIONS (111)
  - Renal impairment [Unknown]
  - Osteomyelitis chronic [Unknown]
  - Loss of consciousness [Unknown]
  - Thyroid neoplasm [Unknown]
  - Aspartate aminotransferase decreased [Unknown]
  - Dizziness [Unknown]
  - Arthritis [Unknown]
  - Wound [Unknown]
  - Cough [Unknown]
  - Neoplasm progression [Fatal]
  - Malignant neoplasm progression [Fatal]
  - Nodule [Fatal]
  - Physical disability [Unknown]
  - Injury [Unknown]
  - Swelling [Unknown]
  - Hypertension [Unknown]
  - Herpes zoster [Unknown]
  - Pruritus [Unknown]
  - Swelling face [Unknown]
  - Cardiomegaly [Unknown]
  - Pulmonary congestion [Unknown]
  - Tremor [Unknown]
  - Thrombocytopenia [Unknown]
  - Hypokalaemia [Unknown]
  - Orthopnoea [Unknown]
  - Jaw disorder [Unknown]
  - Abscess jaw [Unknown]
  - Pleural adhesion [Unknown]
  - Metastases to pancreas [Unknown]
  - Metastases to bone [Fatal]
  - Metastases to lung [Fatal]
  - Oral cavity fistula [Unknown]
  - Spinal osteoarthritis [Unknown]
  - Right ventricular hypertrophy [Unknown]
  - Endometrial disorder [Unknown]
  - Decreased appetite [Unknown]
  - Intermittent claudication [Unknown]
  - Hypocalcaemia [Unknown]
  - Palpitations [Unknown]
  - Vascular calcification [Unknown]
  - Bladder dilatation [Unknown]
  - Nausea [Unknown]
  - Deformity [Unknown]
  - Depression [Unknown]
  - Pain in jaw [Unknown]
  - Hepatic congestion [Unknown]
  - Flatulence [Unknown]
  - Primary sequestrum [Unknown]
  - Myocardial infarction [Unknown]
  - Metastases to pleura [Unknown]
  - Splenitis [Unknown]
  - Infection [Unknown]
  - Emotional distress [Unknown]
  - Anxiety [Unknown]
  - Cerebral ischaemia [Unknown]
  - Syncope [Unknown]
  - Cellulitis [Unknown]
  - Memory impairment [Unknown]
  - Stomatitis [Unknown]
  - Purulent discharge [Unknown]
  - Pulmonary oedema [Unknown]
  - Weight increased [Unknown]
  - Lymphadenopathy [Unknown]
  - Osteosclerosis [Unknown]
  - Hyperglycaemia [Unknown]
  - Dental necrosis [Unknown]
  - Myocardial fibrosis [Unknown]
  - Hyperlipidaemia [Unknown]
  - Arteriosclerosis coronary artery [Unknown]
  - Pain [Unknown]
  - Diverticulum intestinal [Unknown]
  - Vasogenic cerebral oedema [Unknown]
  - Cholelithiasis [Unknown]
  - Encephalomalacia [Unknown]
  - Erythema [Unknown]
  - Fall [Unknown]
  - Alanine aminotransferase decreased [Unknown]
  - Diarrhoea [Recovering/Resolving]
  - Hypotension [Unknown]
  - Dehydration [Unknown]
  - Weight decreased [Unknown]
  - Pulmonary fibrosis [Unknown]
  - Nephrosclerosis [Unknown]
  - Dermal cyst [Unknown]
  - Pelvic pain [Unknown]
  - Metastases to central nervous system [Fatal]
  - Osteonecrosis of jaw [Unknown]
  - Overdose [Unknown]
  - General physical health deterioration [Unknown]
  - Clavicle fracture [Unknown]
  - Radiation necrosis [Unknown]
  - Suicidal ideation [Unknown]
  - Craniocerebral injury [Unknown]
  - Cataract [Unknown]
  - Endometrial atrophy [Unknown]
  - Blood glucose increased [Unknown]
  - Blood triglycerides increased [Unknown]
  - Poor quality sleep [Unknown]
  - Chest pain [Unknown]
  - Exposed bone in jaw [Unknown]
  - Metastases to heart [Fatal]
  - Jaw fracture [Unknown]
  - Abscess [Unknown]
  - Bone loss [Unknown]
  - Sexual dysfunction [Unknown]
  - Arteriosclerosis [Unknown]
  - Haemoptysis [Unknown]
  - Hyperplasia [Unknown]
  - Pollakiuria [Unknown]
  - Chest wall cyst [Unknown]
  - Fatigue [Unknown]

NARRATIVE: CASE EVENT DATE: 200702
